FAERS Safety Report 4634997-1 (Version None)
Quarter: 2005Q2

REPORT INFORMATION
  Report Type: 
  Country: None (occurrence: None)
  Receive Date: 20050414
  Receipt Date: 20041222
  Transmission Date: 20051028
  Serious: Yes (Other)
  Sender: FDA-Public Use
  Company Number: 200422395GDDC

PATIENT
  Age: 66 Year
  Sex: Male

DRUGS (12)
  1. LANTUS [Suspect]
     Indication: DIABETES MELLITUS
     Route: 030
     Dates: start: 20040701
  2. METRONIDAZOLE [Suspect]
     Indication: TOOTH DISORDER
     Route: 048
     Dates: start: 20041117, end: 20041119
  3. METFORMIN HCL [Suspect]
     Indication: DIABETES MELLITUS
     Route: 048
  4. PIROXICAM [Concomitant]
     Indication: ANALGESIC EFFECT
     Route: 048
  5. ATORVASTATIN CALCIUM [Concomitant]
     Indication: BLOOD CHOLESTEROL INCREASED
     Route: 048
  6. ASPIRIN [Concomitant]
  7. SILDENAFIL [Concomitant]
     Indication: ERECTILE DYSFUNCTION
     Route: 048
  8. LOSARTAN POTASSIUM [Concomitant]
     Indication: HYPERTENSION
     Route: 048
  9. CO-PROXAMOL [Concomitant]
     Indication: ANALGESIC EFFECT
     Dosage: DOSE: 7-2
     Route: 048
  10. AMOXICILLIN [Concomitant]
     Indication: TOOTH DISORDER
     Route: 048
     Dates: start: 20041111, end: 20041118
  11. NASONEX [Concomitant]
     Indication: NASAL DISORDER
  12. NASEPTIN [Concomitant]
     Indication: NASAL DISORDER
     Dates: start: 20040927, end: 20041004

REACTIONS (3)
  - BLOOD PRESSURE INCREASED [None]
  - DIABETES MELLITUS INADEQUATE CONTROL [None]
  - HYPOGLYCAEMIA [None]
